FAERS Safety Report 16093781 (Version 1)
Quarter: 2019Q1

REPORT INFORMATION
  Report Type: Report from Study
  Country: IT (occurrence: IT)
  Receive Date: 20190320
  Receipt Date: 20190320
  Transmission Date: 20190418
  Serious: Yes (Hospitalization)
  Sender: FDA-Public Use
  Company Number: IT-ACCORD-114231

PATIENT
  Age: 90 Year
  Sex: Female

DRUGS (6)
  1. VALIUM [Suspect]
     Active Substance: DIAZEPAM
     Dosage: STRENGTH 5 MG / ML
     Route: 048
     Dates: start: 20181127, end: 20181127
  2. CARBIDOPA/LEVODOPA [Suspect]
     Active Substance: CARBIDOPA\LEVODOPA
     Route: 048
     Dates: start: 20181127, end: 20181127
  3. KEPPRA [Suspect]
     Active Substance: LEVETIRACETAM
     Dosage: STRENGTH 500 MG
     Route: 048
     Dates: start: 20181127, end: 20181127
  4. LEVOMEPROMAZINE [Suspect]
     Active Substance: LEVOMEPROMAZINE
     Route: 048
     Dates: start: 20181127, end: 20181127
  5. DEPAKIN [Suspect]
     Active Substance: VALPROATE SODIUM
     Dosage: STRENGTH 500 MG
     Route: 048
     Dates: start: 20181127, end: 20181127
  6. CHLORPROMAZINE. [Suspect]
     Active Substance: CHLORPROMAZINE
     Route: 048
     Dates: start: 20181127, end: 20181127

REACTIONS (2)
  - Sopor [Recovering/Resolving]
  - Medication error [Unknown]

NARRATIVE: CASE EVENT DATE: 20181127
